FAERS Safety Report 5269813-0 (Version None)
Quarter: 2007Q1

REPORT INFORMATION
  Report Type: 
  Country: None (occurrence: None)
  Receive Date: 20070320
  Receipt Date: 20070313
  Transmission Date: 20070707
  Serious: Yes (Other)
  Sender: FDA-Public Use
  Company Number: 2007AC00434

PATIENT
  Sex: Female
  Weight: 40 kg

DRUGS (1)
  1. LOSEC [Suspect]

REACTIONS (1)
  - COLITIS COLLAGENOUS [None]
